FAERS Safety Report 6493570-3 (Version None)
Quarter: 2009Q4

REPORT INFORMATION
  Report Type: 
  Country: None (occurrence: None)
  Receive Date: 20091214
  Receipt Date: 20091208
  Transmission Date: 20100525
  Serious: Yes (Other)
  Sender: FDA-Public Use
  Company Number: US-ROXANE LABORATORIES, INC.-2009-RO-01236RO

PATIENT
  Age: 25 Year
  Sex: Female

DRUGS (6)
  1. PREDNISONE TAB [Suspect]
     Indication: DISORDER OF ORBIT
  2. PREDNISONE TAB [Suspect]
  3. METHOTREXATE [Suspect]
     Indication: DISORDER OF ORBIT
  4. STEROID EYE DROPS [Concomitant]
     Indication: DISORDER OF ORBIT
     Route: 047
  5. LEFLUNOMIDE [Concomitant]
     Indication: DISORDER OF ORBIT
     Dosage: 40 MG
  6. LEFLUNOMIDE [Concomitant]
     Dosage: 20 MG

REACTIONS (5)
  - ACNE [None]
  - DRUG TOXICITY [None]
  - INFLAMMATORY PSEUDOTUMOUR [None]
  - LIVER FUNCTION TEST ABNORMAL [None]
  - WEIGHT INCREASED [None]
